FAERS Safety Report 20963135 (Version 2)
Quarter: 2022Q2

REPORT INFORMATION
  Report Type: Report from Study
  Country: CA (occurrence: CA)
  Receive Date: 20220615
  Receipt Date: 20220623
  Transmission Date: 20220721
  Serious: Yes (Hospitalization, Other)
  Sender: FDA-Public Use
  Company Number: CA-HLS-202200629

PATIENT
  Age: 59 Year
  Sex: Male

DRUGS (1)
  1. CLOZARIL [Suspect]
     Active Substance: CLOZAPINE
     Indication: Product used for unknown indication
     Dosage: HAD A TWO DAY BREAK IN TREATMENT AND RESTARTED THE DRUG ON 09-JUN-2022
     Route: 048
     Dates: start: 20171102

REACTIONS (4)
  - Neutropenia [Not Recovered/Not Resolved]
  - Therapy interrupted [Unknown]
  - Psychotic disorder [Unknown]
  - Leukopenia [Not Recovered/Not Resolved]

NARRATIVE: CASE EVENT DATE: 20220322
